FAERS Safety Report 6681259-7 (Version None)
Quarter: 2010Q2

REPORT INFORMATION
  Report Type: 
  Country: None (occurrence: None)
  Receive Date: 20100414
  Receipt Date: 20100224
  Transmission Date: 20101027
  Serious: No
  Sender: FDA-Public Use
  Company Number: US-KINGPHARMUSA00001-K201000219

PATIENT
  Age: 58 Year
  Sex: Female
  Weight: 58.957 kg

DRUGS (5)
  1. SKELAXIN [Suspect]
     Indication: MUSCLE SPASMS
     Dosage: 800 MG, PRN
     Route: 048
     Dates: start: 20100219, end: 20100221
  2. SKELAXIN [Suspect]
     Dosage: 400 MG, PRN
     Dates: start: 20100221
  3. IBUPROFEN [Concomitant]
     Indication: BACK PAIN
     Dosage: UNK
  4. CALCIUM [Concomitant]
     Dosage: UNK
  5. VITAMIN D [Concomitant]
     Dosage: UNK

REACTIONS (4)
  - DEPRESSED LEVEL OF CONSCIOUSNESS [None]
  - DIZZINESS [None]
  - FEELING ABNORMAL [None]
  - INSOMNIA [None]
